FAERS Safety Report 9496948 (Version 1)
Quarter: 2013Q3

REPORT INFORMATION
  Report Type: Spontaneous
  Country: US (occurrence: None)
  Receive Date: 20130903
  Receipt Date: 20130903
  Transmission Date: 20140515
  Serious: Yes (Life-Threatening, Disabling)
  Sender: FDA-Public Use
  Company Number: None

PATIENT
  Age: 43 Year
  Sex: Male
  Weight: 86.18 kg

DRUGS (1)
  1. NATURALYTE [Suspect]
     Indication: RENAL FAILURE CHRONIC
     Dates: start: 20130802, end: 20130830

REACTIONS (4)
  - Dialysis [None]
  - Chest discomfort [None]
  - Cough [None]
  - Lethargy [None]
